FAERS Safety Report 9825824 (Version 1)
Quarter: 2013Q4

REPORT INFORMATION
  Report Type: Spontaneous
  Country: US (occurrence: None)
  Receive Date: 20131223
  Receipt Date: 20131223
  Transmission Date: 20140711
  Serious: No
  Sender: FDA-Public Use
  Company Number: 217938LEO

PATIENT
  Sex: Female

DRUGS (2)
  1. PICATO GEL [Suspect]
     Indication: BASAL CELL CARCINOMA
     Dates: start: 20120604, end: 20120605
  2. PICATO GEL [Suspect]
     Indication: CARCINOMA IN SITU
     Dates: start: 20120604, end: 20120605

REACTIONS (7)
  - Application site burn [None]
  - Application site pruritus [None]
  - Application site pain [None]
  - Application site scab [None]
  - Headache [None]
  - Off label use [None]
  - Drug administered at inappropriate site [None]
